FAERS Safety Report 10777187 (Version 1)
Quarter: 2015Q1

REPORT INFORMATION
  Report Type: Spontaneous
  Country: PL (occurrence: PL)
  Receive Date: 20150209
  Receipt Date: 20150209
  Transmission Date: 20150721
  Serious: Yes (Other)
  Sender: FDA-Public Use
  Company Number: PL-BAXTER-2015BAX003011

PATIENT
  Age: 57 Year
  Sex: Female

DRUGS (3)
  1. 5-FLUOROURACIL [Suspect]
     Active Substance: FLUOROURACIL
     Indication: BREAST CANCER METASTATIC
     Dosage: 3 COURSES OF CHEMOTHERAPY
     Route: 065
  2. EPIRUBICIN [Suspect]
     Active Substance: EPIRUBICIN
     Indication: BREAST CANCER METASTATIC
     Dosage: 3 COURSES OF CHEMOTHERAPY
     Route: 065
  3. ENDOXAN [Suspect]
     Active Substance: CYCLOPHOSPHAMIDE
     Indication: BREAST CANCER METASTATIC
     Dosage: 3 COURSES OF CHEMOTHERAPY
     Route: 065

REACTIONS (8)
  - Hypokalaemia [Unknown]
  - Neutropenia [Unknown]
  - Asthenia [Unknown]
  - Dysphagia [Recovering/Resolving]
  - Dizziness [Unknown]
  - Headache [Unknown]
  - Metastases to bone [Recovering/Resolving]
  - Anaemia [Unknown]
